FAERS Safety Report 25200825 (Version 2)
Quarter: 2025Q2

REPORT INFORMATION
  Report Type: Report from Study
  Country: KR (occurrence: KR)
  Receive Date: 20250415
  Receipt Date: 20250415
  Transmission Date: 20250716
  Serious: Yes (Hospitalization, Other)
  Sender: SUNOVION
  Company Number: KR-SUMITOMO PHARMA SWITZERLAND GMBH-2025SPA004673

PATIENT

DRUGS (6)
  1. VIBEGRON [Suspect]
     Active Substance: VIBEGRON
     Indication: Hypertonic bladder
     Route: 048
     Dates: start: 20240605, end: 20240903
  2. Whanin clonazepam [Concomitant]
     Indication: Polyneuropathy
     Dosage: 1 MG, QD
     Route: 048
     Dates: start: 20240214
  3. Neurocover [Concomitant]
     Indication: Polyneuropathy
     Dosage: 1 MG, QD
     Route: 048
     Dates: start: 20240214
  4. EDOXABAN TOSYLATE [Concomitant]
     Active Substance: EDOXABAN TOSYLATE
     Indication: Atrial fibrillation
     Dosage: 1 MG, QD
     Route: 048
     Dates: start: 20240318
  5. BISOPROLOL FUMARATE [Concomitant]
     Active Substance: BISOPROLOL FUMARATE
     Indication: Cardiac failure
     Dosage: 1 MG, QD
     Route: 048
     Dates: start: 20240318
  6. JARDIANCE [Concomitant]
     Active Substance: EMPAGLIFLOZIN
     Indication: Diabetes mellitus
     Dosage: 1 MG, QD
     Route: 048
     Dates: start: 20240318

REACTIONS (2)
  - Cardiac failure [Recovered/Resolved]
  - Plasma cell myeloma [Recovering/Resolving]

NARRATIVE: CASE EVENT DATE: 20240614
